FAERS Safety Report 5244572-6 (Version None)
Quarter: 2007Q1

REPORT INFORMATION
  Report Type: 
  Country: None (occurrence: None)
  Receive Date: 20070222
  Receipt Date: 20070216
  Transmission Date: 20070707
  Serious: Yes (Hospitalization)
  Sender: FDA-Public Use
  Company Number: FR-BAXTER-2007BH002137

PATIENT
  Age: 81 Year
  Sex: Female
  Weight: 73 kg

DRUGS (9)
  1. EXTRANEAL [Suspect]
     Indication: PERITONEAL DIALYSIS
     Route: 033
     Dates: start: 20060222
  2. AMLODIPINE [Concomitant]
  3. FUROSEMIDE [Concomitant]
  4. ASPIRIN [Concomitant]
  5. ATORVASTATIN [Concomitant]
  6. MIXTARD HUMAN [Concomitant]
  7. ACTRAPID HUMAN [Concomitant]
  8. PHYSIONEAL [Concomitant]
     Dates: start: 20060222
  9. NUTRINEAL, UNSPECIFIED PRODUCT [Concomitant]
     Dates: start: 20060222

REACTIONS (2)
  - CHILLS [None]
  - PERITONITIS [None]
